FAERS Safety Report 18270126 (Version 5)
Quarter: 2020Q4

REPORT INFORMATION
  Report Type: Spontaneous
  Country: US (occurrence: US)
  Receive Date: 20200915
  Receipt Date: 20201109
  Transmission Date: 20210113
  Serious: No
  Sender: FDA-Public Use
  Company Number: US-SA-2020SA245716

PATIENT

DRUGS (1)
  1. TOUJEO [Suspect]
     Active Substance: INSULIN GLARGINE
     Indication: TYPE 1 DIABETES MELLITUS
     Dosage: 15 IU, QD (AT NIGHT)
     Route: 065
     Dates: start: 202009

REACTIONS (4)
  - Incorrect dose administered [Unknown]
  - Blood glucose increased [Unknown]
  - Wrong technique in device usage process [Unknown]
  - Device operational issue [Unknown]
